FAERS Safety Report 17210407 (Version 1)
Quarter: 2019Q4

REPORT INFORMATION
  Report Type: Spontaneous
  Country: FR (occurrence: FR)
  Receive Date: 20191227
  Receipt Date: 20191227
  Transmission Date: 20200122
  Serious: Yes (Other)
  Sender: FDA-Public Use
  Company Number: FR-ELI_LILLY_AND_COMPANY-FR201912010655

PATIENT
  Age: 79 Year
  Sex: Male

DRUGS (4)
  1. PANTOPRAZOLE [Suspect]
     Active Substance: PANTOPRAZOLE
     Indication: PROPHYLAXIS
     Dosage: 20 MG, DAILY
     Route: 048
     Dates: start: 20191104, end: 20191128
  2. RIFADINE [RIFAMPICIN SODIUM] [Suspect]
     Active Substance: RIFAMPIN SODIUM
     Indication: DEVICE RELATED INFECTION
     Dosage: 900 MG, DAILY
     Route: 048
     Dates: start: 20191009, end: 20191130
  3. CYMBALTA [Suspect]
     Active Substance: DULOXETINE HYDROCHLORIDE
     Indication: DEPRESSION
     Dosage: 30 MG, DAILY
     Route: 048
     Dates: start: 20191106, end: 20191128
  4. TARGOCID [Suspect]
     Active Substance: TEICOPLANIN
     Indication: DEVICE RELATED INFECTION
     Dosage: 600 MG, DAILY
     Route: 048
     Dates: start: 20191009, end: 20191130

REACTIONS (1)
  - Agranulocytosis [Recovered/Resolved]

NARRATIVE: CASE EVENT DATE: 20191128
